FAERS Safety Report 18724537 (Version 1)
Quarter: 2021Q1

REPORT INFORMATION
  Report Type: Spontaneous
  Country: US (occurrence: US)
  Receive Date: 20210107
  Receipt Date: 20210107
  Transmission Date: 20210419
  Serious: Yes (Hospitalization)
  Sender: FDA-Public Use
  Company Number: None

PATIENT
  Age: 31 Year
  Sex: Male

DRUGS (1)
  1. DEXTROMETHORPHAN/GUAIFENESIN (DEXTROMETHORPHAN 10MG/GUAIFENESIN 100MG/5ML (SF) LIQUID) [Suspect]
     Active Substance: DEXTROMETHORPHAN\GUAIFENESIN
     Dates: start: 20201127

REACTIONS (3)
  - Accidental overdose [None]
  - Hallucination [None]
  - Alcohol use [None]

NARRATIVE: CASE EVENT DATE: 20201127
